FAERS Safety Report 8247765-9 (Version None)
Quarter: 2012Q1

REPORT INFORMATION
  Report Type: 
  Country: None (occurrence: None)
  Receive Date: 20120330
  Receipt Date: 20120329
  Transmission Date: 20120608
  Serious: Yes (Other)
  Sender: FDA-Public Use
  Company Number: DE-GLAXOSMITHKLINE-D0075077A

PATIENT
  Sex: Female

DRUGS (1)
  1. PROMACTA [Suspect]
     Dosage: 50MG VARIABLE DOSE
     Route: 048
     Dates: start: 20110101

REACTIONS (2)
  - SKIN NECROSIS [None]
  - CONDITION AGGRAVATED [None]
